FAERS Safety Report 23375472 (Version 1)
Quarter: 2024Q1

REPORT INFORMATION
  Report Type: Spontaneous
  Country: US (occurrence: US)
  Receive Date: 20240107
  Receipt Date: 20240107
  Transmission Date: 20240410
  Serious: Yes (Life-Threatening, Hospitalization, Other)
  Sender: FDA-Public Use
  Company Number: US-DENTSPLY-2023SCDP000437

PATIENT
  Age: 19 Year
  Sex: Female

DRUGS (2)
  1. LIDOCAINE HYDROCHLORIDE AND EPINEPHRINE BITARTRATE [Suspect]
     Active Substance: EPINEPHRINE BITARTRATE\LIDOCAINE HYDROCHLORIDE
     Indication: Analgesic therapy
     Dosage: UNK DOSE OF 4% LIDOCAINE WITH 1:1,000 (1 MG/ML) EPINEPHRINE
     Route: 061
  2. LIDOCAINE HYDROCHLORIDE AND EPINEPHRINE BITARTRATE [Suspect]
     Active Substance: EPINEPHRINE BITARTRATE\LIDOCAINE HYDROCHLORIDE
     Indication: Haemostasis
     Dosage: UNK DOSE OF 1% LIDOCAINE WITH 1:100,000 (1 MG/(100.ML) EPINEPHRINE INJECTION
     Route: 045

REACTIONS (4)
  - Hypertensive emergency [None]
  - Cardiogenic shock [None]
  - Stress cardiomyopathy [None]
  - Acute pulmonary oedema [None]
